FAERS Safety Report 22102992 (Version 2)
Quarter: 2023Q1

REPORT INFORMATION
  Report Type: Spontaneous
  Country: JP (occurrence: None)
  Receive Date: 20230316
  Receipt Date: 20230323
  Transmission Date: 20230417
  Serious: Yes (Other)
  Sender: FDA-Public Use
  Company Number: 2023A058989

PATIENT
  Age: 61 Year
  Sex: Male
  Weight: 74 kg

DRUGS (3)
  1. IMFINZI [Suspect]
     Active Substance: DURVALUMAB
     Indication: Non-small cell lung cancer
     Route: 041
     Dates: start: 202103, end: 202108
  2. CARBOPLATIN [Suspect]
     Active Substance: CARBOPLATIN
     Indication: Non-small cell lung cancer
     Dosage: DOSE UNKNOWN
     Dates: start: 202201, end: 202207
  3. PACLITAXEL [Suspect]
     Active Substance: PACLITAXEL
     Indication: Non-small cell lung cancer
     Dosage: DOSE UNKNOWN
     Dates: start: 202202, end: 202207

REACTIONS (11)
  - Metastases to meninges [Unknown]
  - Hypoaesthesia [Unknown]
  - Visual impairment [Unknown]
  - Musculoskeletal pain [Unknown]
  - Hypoaesthesia [Unknown]
  - Pain in extremity [Unknown]
  - Dizziness [Unknown]
  - Disorientation [Unknown]
  - Incontinence [Unknown]
  - Anal hypoaesthesia [Unknown]
  - Eastern Cooperative Oncology Group performance status worsened [Unknown]
